FAERS Safety Report 11857371 (Version 2)
Quarter: 2015Q4

REPORT INFORMATION
  Report Type: Spontaneous
  Country: JP (occurrence: JP)
  Receive Date: 20151221
  Receipt Date: 20151222
  Transmission Date: 20160305
  Serious: Yes (Other)
  Sender: FDA-Public Use
  Company Number: JP-ACTAVIS-2015-18164

PATIENT
  Age: 68 Year
  Sex: Male

DRUGS (3)
  1. FENTANYL. [Concomitant]
     Active Substance: FENTANYL
     Indication: PAIN
     Dosage: 12.5MCG/H
     Route: 062
  2. BETAMETHASONE (UNKNOWN) [Suspect]
     Active Substance: BETAMETHASONE
     Indication: FATIGUE
     Dosage: 2 MG, DAILY
     Route: 048
  3. BETAMETHASONE (UNKNOWN) [Suspect]
     Active Substance: BETAMETHASONE
     Indication: DECREASED APPETITE
     Dosage: 1 MG, DAILY
     Route: 048

REACTIONS (2)
  - Cushingoid [Unknown]
  - Myopathy [Recovered/Resolved]
